FAERS Safety Report 7234295-6 (Version None)
Quarter: 2011Q1

REPORT INFORMATION
  Report Type: 
  Country: None (occurrence: None)
  Receive Date: 20110119
  Receipt Date: 20110106
  Transmission Date: 20110831
  Serious: Yes (Other)
  Sender: FDA-Public Use
  Company Number: AU-MYLANLABS-2011S1000621

PATIENT
  Sex: Female

DRUGS (1)
  1. AKAMIN [Suspect]
     Indication: ACNE
     Route: 048
     Dates: start: 20080101

REACTIONS (2)
  - CONVULSION [None]
  - HYPERTHYROIDISM [None]
